FAERS Safety Report 19396558 (Version 2)
Quarter: 2021Q2

REPORT INFORMATION
  Report Type: Spontaneous
  Country: JP (occurrence: JP)
  Receive Date: 20210610
  Receipt Date: 20210630
  Transmission Date: 20210717
  Serious: Yes (Other)
  Sender: FDA-Public Use
  Company Number: JP-BEH-2021132525

PATIENT
  Age: 31 Year
  Sex: Female
  Weight: 46.8 kg

DRUGS (2)
  1. HIZENTRA [Suspect]
     Active Substance: HUMAN IMMUNOGLOBULIN G
     Dosage: 20 GRAM, QW, (4GX5)
     Route: 058
     Dates: start: 20210531
  2. HIZENTRA [Suspect]
     Active Substance: HUMAN IMMUNOGLOBULIN G
     Dosage: 20 GRAM, QW (4GX5)
     Route: 065

REACTIONS (5)
  - Syncope [Recovered/Resolved]
  - Puncture site pain [Recovered/Resolved]
  - Confusional state [Unknown]
  - Headache [Recovered/Resolved]
  - Tinnitus [Recovered/Resolved]

NARRATIVE: CASE EVENT DATE: 20210531
